FAERS Safety Report 8839574 (Version 4)
Quarter: 2013Q2

REPORT INFORMATION
  Report Type: Spontaneous
  Country: JP (occurrence: JP)
  Receive Date: 20121015
  Receipt Date: 20130430
  Transmission Date: 20140414
  Serious: Yes (Hospitalization, Other)
  Sender: FDA-Public Use
  Company Number: PHHY2012JP090630

PATIENT
  Age: 82 Year
  Sex: Female
  Weight: 55 kg

DRUGS (10)
  1. EXELON PATCH [Suspect]
     Indication: DEMENTIA ALZHEIMER^S TYPE
     Dosage: 18 MG, DAILY
     Route: 062
     Dates: start: 20120501, end: 20120927
  2. EXELON PATCH [Suspect]
     Dosage: 4.5 MG, DAILY
     Route: 062
     Dates: start: 20121218, end: 20130121
  3. EXELON PATCH [Suspect]
     Dosage: 9 MG, DAILY
     Route: 062
     Dates: start: 20130122
  4. YOKUKAN-SAN [Suspect]
     Indication: DEMENTIA ALZHEIMER^S TYPE
     Dosage: 2.5 G, DAILY
     Route: 048
     Dates: start: 20120501, end: 20120927
  5. YOKUKAN-SAN [Suspect]
     Dosage: 2.5 G, DAILY
     Route: 048
     Dates: start: 20120930, end: 20121023
  6. FUROSEMIDE [Suspect]
     Indication: RENAL FAILURE CHRONIC
     Dosage: 40 MG, DAILY
     Route: 048
     Dates: start: 201201
  7. AMLODIPINE BESILATE [Concomitant]
     Indication: HYPERTENSION
     Dosage: 5 MG, UNK
     Route: 048
     Dates: start: 201208, end: 20121009
  8. ARGAMATE [Concomitant]
     Indication: RENAL FAILURE CHRONIC
     Dosage: 25 G, UNK
     Route: 048
     Dates: start: 201201
  9. EPOETIN ALFA [Concomitant]
     Dosage: UNK UKN, UNK
     Dates: start: 201210
  10. NESP [Concomitant]
     Dosage: UNK UKN, UNK
     Dates: start: 201210

REACTIONS (7)
  - Pyelonephritis [Recovering/Resolving]
  - Urinary tract infection [Recovering/Resolving]
  - Blood alkaline phosphatase increased [Recovering/Resolving]
  - Drug-induced liver injury [Recovering/Resolving]
  - Hepatic function abnormal [Recovered/Resolved]
  - Lymphocyte stimulation test positive [Unknown]
  - Urticaria [Unknown]
